FAERS Safety Report 4936433-4 (Version None)
Quarter: 2006Q1

REPORT INFORMATION
  Report Type: 
  Country: None (occurrence: None)
  Receive Date: 20060302
  Receipt Date: 20060209
  Transmission Date: 20060701
  Serious: Yes (Hospitalization)
  Sender: FDA-Public Use
  Company Number: USA041286092

PATIENT
  Age: 62 Year
  Sex: Female

DRUGS (4)
  1. FORTEO [Suspect]
     Indication: OSTEOPOROSIS
     Dosage: 20 UG, DAILY (1/D)
     Dates: start: 20040401
  2. WELLBUTRIN [Concomitant]
  3. DYAZIDE [Concomitant]
  4. FORTEO [Concomitant]

REACTIONS (2)
  - ARTHRITIS BACTERIAL [None]
  - PHARMACEUTICAL PRODUCT COMPLAINT [None]
